FAERS Safety Report 8181581-1 (Version None)
Quarter: 2012Q1

REPORT INFORMATION
  Report Type: 
  Country: None (occurrence: None)
  Receive Date: 20120301
  Receipt Date: 20120301
  Transmission Date: 20120608
  Serious: Yes (Hospitalization)
  Sender: FDA-Public Use
  Company Number: None

PATIENT
  Sex: Female
  Weight: 118 kg

DRUGS (3)
  1. TAXOL [Suspect]
     Dosage: 250 MG
  2. DOXORUBICIN HCL [Suspect]
     Dosage: 60 MG
  3. CISPLATIN [Suspect]
     Dosage: 100 MG

REACTIONS (3)
  - DIARRHOEA [None]
  - HAEMATOCRIT DECREASED [None]
  - BLOOD POTASSIUM DECREASED [None]
